FAERS Safety Report 7096060-2 (Version None)
Quarter: 2010Q4

REPORT INFORMATION
  Report Type: 
  Country: None (occurrence: None)
  Receive Date: 20101111
  Receipt Date: 20080414
  Transmission Date: 20110411
  Serious: No
  Sender: FDA-Public Use
  Company Number: US-KINGPHARMUSA00001-K200800444

PATIENT
  Sex: Female

DRUGS (1)
  1. EPIPEN [Suspect]
     Dosage: UNK, SINGLE

REACTIONS (2)
  - INJURY ASSOCIATED WITH DEVICE [None]
  - NEEDLE ISSUE [None]
